APPROVED DRUG PRODUCT: RIZATRIPTAN BENZOATE
Active Ingredient: RIZATRIPTAN BENZOATE
Strength: EQ 5MG BASE
Dosage Form/Route: TABLET, ORALLY DISINTEGRATING;ORAL
Application: A078173 | Product #001
Applicant: PHARMOBEDIENT CONSULTING LLC
Approved: Dec 31, 2012 | RLD: No | RS: No | Type: DISCN